FAERS Safety Report 21665385 (Version 1)
Quarter: 2022Q4

REPORT INFORMATION
  Report Type: Spontaneous
  Country: ES (occurrence: ES)
  Receive Date: 20221201
  Receipt Date: 20221201
  Transmission Date: 20230112
  Serious: Yes (Other)
  Sender: FDA-Public Use
  Company Number: ES-SUN PHARMACEUTICAL INDUSTRIES LTD-2022RR-347728

PATIENT
  Age: 24 Year
  Sex: Female

DRUGS (2)
  1. ACETAMINOPHEN [Suspect]
     Active Substance: ACETAMINOPHEN
     Indication: Headache
     Dosage: 1 GRAM
     Route: 048
     Dates: start: 20210210
  2. DROSPIRENONE\ETHINYL ESTRADIOL [Suspect]
     Active Substance: DROSPIRENONE\ETHINYL ESTRADIOL
     Indication: Contraception
     Dosage: DROSURE DAILY
     Route: 065

REACTIONS (7)
  - Drug abuse [Unknown]
  - Migraine [Unknown]
  - Pyrexia [Recovering/Resolving]
  - Chills [Recovering/Resolving]
  - Musculoskeletal pain [Recovering/Resolving]
  - Malaise [Recovering/Resolving]
  - Headache [Recovered/Resolved]

NARRATIVE: CASE EVENT DATE: 20210210
